FAERS Safety Report 10195823 (Version 1)
Quarter: 2014Q2

REPORT INFORMATION
  Report Type: Spontaneous
  Country: US (occurrence: US)
  Receive Date: 20140527
  Receipt Date: 20140527
  Transmission Date: 20141212
  Serious: Yes (Hospitalization)
  Sender: FDA-Public Use
  Company Number: US-SHIRE-US201402347

PATIENT
  Age: 47 Year
  Sex: Male

DRUGS (2)
  1. FOSRENOL [Suspect]
     Indication: HYPERPHOSPHATAEMIA
     Dosage: 1000 MG, 2X/DAY:BID
     Route: 048
  2. COUMADIN                           /00014802/ [Concomitant]
     Indication: HYPERCOAGULATION
     Dosage: UNK, UNKNOWN
     Route: 065

REACTIONS (3)
  - Haematuria [Unknown]
  - X-ray abnormal [Recovered/Resolved]
  - Wrong technique in drug usage process [Recovered/Resolved]
